FAERS Safety Report 8418561-4 (Version None)
Quarter: 2012Q2

REPORT INFORMATION
  Report Type: 
  Country: None (occurrence: None)
  Receive Date: 20120607
  Receipt Date: 20120605
  Transmission Date: 20120825
  Serious: No
  Sender: FDA-Public Use
  Company Number: US-PFIZER INC-2012121499

PATIENT
  Sex: Male
  Weight: 67.12 kg

DRUGS (5)
  1. TRAMADOL HCL [Suspect]
     Indication: PAIN
     Dosage: UNK
  2. CHANTIX [Suspect]
     Indication: SMOKING CESSATION THERAPY
     Dosage: 0.5 MG, DAILY
  3. CHANTIX [Suspect]
     Dosage: 0.5 MG, DAILY
     Dates: start: 20120517
  4. NAPROXEN [Suspect]
     Indication: PAIN
     Dosage: UNK
  5. AMLODIPINE [Concomitant]
     Indication: HYPERTENSION
     Dosage: 5 MG, DAILY

REACTIONS (3)
  - DRUG INEFFECTIVE [None]
  - CONFUSIONAL STATE [None]
  - DIZZINESS [None]
